FAERS Safety Report 8789635 (Version 3)
Quarter: 2013Q1

REPORT INFORMATION
  Report Type: Spontaneous
  Country: US (occurrence: None)
  Receive Date: 20120905
  Receipt Date: 20121106
  Transmission Date: 20140127
  Serious: Yes (Hospitalization)
  Sender: FDA-Public Use
  Company Number: 2012-3932

PATIENT
  Age: 11 Year
  Sex: Male
  Weight: 30.4 kg

DRUGS (3)
  1. INCRELEX [Suspect]
     Indication: BODY HEIGHT BELOW NORMAL
     Route: 058
     Dates: start: 201112, end: 20120825
  2. INCRELEX [Suspect]
     Indication: FAILURE TO THRIVE
     Route: 058
     Dates: start: 201112, end: 20120825
  3. INCRELEX [Suspect]
     Indication: OFF LABEL USE
     Route: 058
     Dates: start: 201112, end: 20120825

REACTIONS (2)
  - Blood glucose increased [None]
  - Blood glucose fluctuation [None]
